FAERS Safety Report 5600730-X (Version None)
Quarter: 2008Q1

REPORT INFORMATION
  Report Type: 
  Country: None (occurrence: None)
  Receive Date: 20080123
  Receipt Date: 20080114
  Transmission Date: 20080703
  Serious: Yes (Hospitalization, Disabling, Other)
  Sender: FDA-Public Use
  Company Number: US-MERCK-0710USA06151

PATIENT
  Age: 63 Year
  Sex: Male

DRUGS (43)
  1. FOSAMAX [Suspect]
     Route: 048
     Dates: start: 19990101, end: 20060101
  2. AMBIEN [Concomitant]
     Route: 065
     Dates: start: 20030814, end: 20071221
  3. AMOCLAV [Concomitant]
     Route: 065
     Dates: start: 20060611, end: 20060701
  4. AVANDIA [Concomitant]
     Route: 065
     Dates: start: 20040422
  5. BEXTRA [Concomitant]
     Route: 065
     Dates: start: 20040101, end: 20050126
  6. CIPROFLOXACIN [Concomitant]
     Route: 065
     Dates: start: 20060628
  7. CLARITIN-D [Concomitant]
     Route: 065
     Dates: start: 20050805
  8. CYCLOBENZAPRINE HYDROCHLORIDE [Concomitant]
     Route: 065
     Dates: start: 20060405, end: 20060601
  9. CYMBALTA [Concomitant]
     Route: 065
     Dates: start: 20050921
  10. DIAZEPAM [Concomitant]
     Route: 065
     Dates: start: 20040113, end: 20071201
  11. DICYCLOMINE HYDROCHLORIDE [Concomitant]
     Route: 065
     Dates: start: 20031215, end: 20040422
  12. DIPHENOXYLATE [Concomitant]
     Route: 065
     Dates: start: 20060407, end: 20060727
  13. ERY-TAB [Concomitant]
     Route: 065
     Dates: start: 20050805
  14. FLEXERIL [Concomitant]
     Route: 065
     Dates: start: 20040304
  15. GLYBURIDE [Concomitant]
     Route: 065
     Dates: start: 20041202, end: 20050403
  16. HYDROCODONE BITARTRATE [Concomitant]
     Route: 065
     Dates: start: 20040113, end: 20061215
  17. HYDRO PC II [Concomitant]
     Route: 065
     Dates: start: 20050805
  18. LEVAQUIN [Concomitant]
     Route: 065
     Dates: start: 20050805
  19. LIPITOR [Concomitant]
     Route: 065
     Dates: start: 20060111, end: 20061219
  20. LUNESTA [Concomitant]
     Route: 065
     Dates: start: 20050601
  21. LYRICA [Concomitant]
     Route: 065
     Dates: start: 20051116, end: 20061119
  22. METOPROLOL [Concomitant]
     Route: 065
     Dates: start: 20031229, end: 20071221
  23. MIRALAX [Concomitant]
     Route: 065
     Dates: start: 20040816, end: 20071221
  24. NEXIUM [Concomitant]
     Route: 065
     Dates: start: 20060111
  25. [THERAPY UNSPECIFIED] [Concomitant]
     Route: 065
     Dates: start: 20060530
  26. PLAVIX [Concomitant]
     Route: 065
     Dates: start: 20060111, end: 20060907
  27. POLYETHYLENE GLYCOL [Concomitant]
     Route: 065
     Dates: start: 20060102, end: 20061221
  28. SUCRALFATE [Concomitant]
     Route: 065
     Dates: start: 20031214, end: 20040422
  29. SULFAMETHAZINE [Concomitant]
     Route: 065
     Dates: start: 20050122
  30. TRILEPTAL [Concomitant]
     Route: 065
     Dates: start: 20031106, end: 20040115
  31. VIAGRA [Concomitant]
     Route: 065
     Dates: start: 20040802, end: 20060102
  32. XENICAL [Concomitant]
     Route: 065
     Dates: start: 20031110, end: 20040509
  33. XENICAL [Concomitant]
     Route: 065
     Dates: start: 20040914
  34. ZITHROMAX [Concomitant]
     Route: 065
     Dates: start: 20050722
  35. ALLEGRA D 24 HOUR [Concomitant]
     Route: 065
     Dates: start: 20040329, end: 20040405
  36. GLUCOVANCE [Concomitant]
     Route: 065
     Dates: start: 20030903, end: 20040513
  37. VIOXX [Concomitant]
     Route: 065
     Dates: start: 20040715
  38. TEQUIN [Concomitant]
     Route: 065
     Dates: start: 20040715
  39. GLYCOLAX [Concomitant]
     Route: 065
     Dates: start: 20040730
  40. MOBIC [Concomitant]
     Route: 065
     Dates: start: 20040825
  41. SKELAXIN [Concomitant]
     Route: 065
     Dates: start: 20040908
  42. COMBIVENT [Concomitant]
     Route: 065
     Dates: start: 20040930
  43. FOSAMAX PLUS D [Suspect]
     Indication: OSTEOPOROSIS
     Route: 048

REACTIONS (15)
  - ARTHRITIS [None]
  - BLOOD CHOLESTEROL [None]
  - BLOOD PRESSURE [None]
  - CARDIAC DISORDER [None]
  - CONSTIPATION [None]
  - DIABETES MELLITUS [None]
  - DIZZINESS [None]
  - ERECTILE DYSFUNCTION [None]
  - GASTROOESOPHAGEAL REFLUX DISEASE [None]
  - HYPERSENSITIVITY [None]
  - NERVOUSNESS [None]
  - OSTEOMYELITIS [None]
  - OSTEONECROSIS [None]
  - SLEEP DISORDER [None]
  - SPINAL DISORDER [None]
